FAERS Safety Report 22197824 (Version 1)
Quarter: 2023Q2

REPORT INFORMATION
  Report Type: Spontaneous
  Country: GB (occurrence: GB)
  Receive Date: 20230411
  Receipt Date: 20230411
  Transmission Date: 20230721
  Serious: Yes (Life-Threatening)
  Sender: FDA-Public Use
  Company Number: None

PATIENT
  Age: 57 Year
  Sex: Female
  Weight: 55 kg

DRUGS (9)
  1. PRIMIDONE [Suspect]
     Active Substance: PRIMIDONE
     Indication: Essential tremor
     Dosage: 1 DOSAGE FORMS DAILY; FOR A WEEK, THEN GRADUALLY INC
     Route: 065
     Dates: start: 20230213
  2. ALENDRONIC ACID [Concomitant]
     Active Substance: ALENDRONIC ACID
     Indication: Product used for unknown indication
     Dosage: ON THE SAME DAY EACH WEEK, 30 M.
     Dates: start: 20220804
  3. CANDESARTAN [Concomitant]
     Active Substance: CANDESARTAN
     Indication: Product used for unknown indication
     Dosage: 1 DOSAGE FORMS DAILY; EACH MORNING
     Dates: start: 20220804
  4. DOXYCYCLINE [Concomitant]
     Active Substance: DOXYCYCLINE
     Indication: Product used for unknown indication
     Dosage: TWO CAPSULES ON THE FIRST DAY, THEN ONE DAILY
     Dates: start: 20221230, end: 20230106
  5. ESTRADIOL [Concomitant]
     Active Substance: ESTRADIOL
     Indication: Product used for unknown indication
     Dates: start: 20220804
  6. BECLOMETHASONE\FORMOTEROL [Concomitant]
     Active Substance: BECLOMETHASONE\FORMOTEROL
     Indication: Product used for unknown indication
     Dosage: ONE TO TWO PUFFS TWICE DAILY, CAN BE INCREASED ...
     Route: 055
     Dates: start: 20220804
  7. CHOLECALCIFEROL [Concomitant]
     Active Substance: CHOLECALCIFEROL
     Indication: Vitamin supplementation
     Dosage: 1 DOSAGE FORMS DAILY; VITAMIN D3 MAINTENANCE
     Dates: start: 20230209
  8. ALBUTEROL [Concomitant]
     Active Substance: ALBUTEROL
     Indication: Product used for unknown indication
     Dosage: USE AS DIRECTED
     Dates: start: 20220804
  9. SUNVIT-D3 [Concomitant]
     Indication: Vitamin supplementation
     Dosage: 1 DOSAGE FORMS DAILY; VITAMIN D MAINTENANCE THERAPY
     Dates: start: 20220804, end: 20230209

REACTIONS (3)
  - Suicidal behaviour [Recovered/Resolved]
  - Suicide attempt [Unknown]
  - Mental impairment [Unknown]
